FAERS Safety Report 11037729 (Version 1)
Quarter: 2015Q2

REPORT INFORMATION
  Report Type: Report from Study
  Country: BE (occurrence: BE)
  Receive Date: 20150416
  Receipt Date: 20150416
  Transmission Date: 20150821
  Serious: Yes (Hospitalization)
  Sender: FDA-Public Use
  Company Number: BE-ABBVIE-15P-013-1374358-00

PATIENT
  Age: 70 Year
  Sex: Female

DRUGS (4)
  1. PROLOPA [Concomitant]
     Active Substance: BENSERAZIDE\LEVODOPA
     Indication: PARKINSON^S DISEASE
     Dosage: FORM STRENGTH: 200MG/50MG, EMERGENCY MEDICICATION
  2. DUODOPA [Suspect]
     Active Substance: CARBIDOPA\LEVODOPA
     Dosage: AM: 0 ML, CD: 3.8 ML/H DURING 16H, ED: 1.5 ML, ND: 3.5 ML/H DURING 8H
     Route: 050
     Dates: start: 20130709, end: 20150126
  3. DUODOPA [Suspect]
     Active Substance: CARBIDOPA\LEVODOPA
     Indication: PARKINSON^S DISEASE
     Dosage: AM: 0 ML, CD: 4 ML/H DURING 16H, ED: 3 ML, ND: 3.5 ML/H DURING 8 H
     Route: 050
     Dates: start: 20071030, end: 20130709
  4. DUODOPA [Suspect]
     Active Substance: CARBIDOPA\LEVODOPA
     Dosage: AM: 0 ML, CD: 3.7 ML/H DURING 16H, ED: 1.5 ML, ND: 3.5 ML/H DURING 8 H
     Route: 050
     Dates: start: 20150126

REACTIONS (1)
  - Neck surgery [Unknown]

NARRATIVE: CASE EVENT DATE: 20150407
